FAERS Safety Report 6389969-6 (Version None)
Quarter: 2009Q4

REPORT INFORMATION
  Report Type: 
  Country: None (occurrence: None)
  Receive Date: 20091006
  Receipt Date: 20090710
  Transmission Date: 20100525
  Serious: No
  Sender: FDA-Public Use
  Company Number: US-BRISTOL-MYERS SQUIBB COMPANY-14697973

PATIENT
  Age: 64 Year
  Sex: Female
  Weight: 63 kg

DRUGS (10)
  1. AVAPRO [Suspect]
     Indication: PROTEINURIA
     Dosage: DOSE REDUCED TO 75MG 1 TAB QD, THEN 75MG 1/2 TAB
     Route: 048
  2. METFORMIN HCL [Suspect]
     Indication: TYPE 2 DIABETES MELLITUS
     Dosage: INCREASED TO 2000MG, THEN DISCONTINUED, TABS
     Dates: start: 20060101, end: 20090101
  3. GLUMETZA [Suspect]
     Indication: TYPE 2 DIABETES MELLITUS
     Dosage: GLUMETZA ER
     Dates: end: 20090101
  4. PLAVIX [Concomitant]
     Dosage: DISCONTINUED AFTER 2-3 MONTHS
     Dates: start: 20081001
  5. ATIVAN [Concomitant]
     Indication: ANXIETY
  6. VITAMIN D [Concomitant]
     Dates: start: 20090501
  7. TYLENOL (CAPLET) [Concomitant]
  8. ACTOS [Concomitant]
     Dates: end: 20090101
  9. REMERON [Concomitant]
     Indication: DEPRESSION
     Dosage: DISONTINUED 1 1/2 MONTHS AGO
  10. AGGRENOX [Concomitant]
     Dosage: DISCONTINUED

REACTIONS (8)
  - ABDOMINAL DISCOMFORT [None]
  - ANXIETY [None]
  - ASTHENIA [None]
  - DEPRESSION [None]
  - DIZZINESS [None]
  - MALAISE [None]
  - TRANSIENT ISCHAEMIC ATTACK [None]
  - WEIGHT DECREASED [None]
